FAERS Safety Report 5816752-X (Version None)
Quarter: 2008Q3

REPORT INFORMATION
  Report Type: 
  Country: None (occurrence: None)
  Receive Date: 20080721
  Receipt Date: 20080707
  Transmission Date: 20090109
  Serious: No
  Sender: FDA-Public Use
  Company Number: US-BOEHRINGER INGELHEIM GMBH, GERMANY-2008-BP-10541BP

PATIENT
  Age: 65 Year
  Sex: Male

DRUGS (1)
  1. FLOMAX [Suspect]
     Indication: BENIGN PROSTATIC HYPERPLASIA
     Route: 048
     Dates: start: 20071001, end: 20080201

REACTIONS (5)
  - DIZZINESS [None]
  - EJACULATION DISORDER [None]
  - FATIGUE [None]
  - RHINORRHOEA [None]
  - SOMNOLENCE [None]
